FAERS Safety Report 5269550-2 (Version None)
Quarter: 2007Q1

REPORT INFORMATION
  Report Type: 
  Country: None (occurrence: None)
  Receive Date: 20070320
  Receipt Date: 20070312
  Transmission Date: 20070707
  Serious: Yes (Hospitalization, Other)
  Sender: FDA-Public Use
  Company Number: 200415883US

PATIENT
  Sex: Female
  Weight: 114.5 kg

DRUGS (15)
  1. ARAVA [Suspect]
     Route: 048
     Dates: start: 20021016, end: 20021201
  2. METHOTREXATE [Suspect]
     Dosage: DOSE: UNK
     Dates: start: 20000101
  3. METHOTREXATE [Suspect]
     Dates: end: 20021016
  4. METHOTREXATE [Suspect]
     Dosage: DOSE: UNK
     Dates: start: 20021101, end: 20021201
  5. METHOTREXATE [Concomitant]
  6. SKELAXIN                           /00611501/ [Concomitant]
     Dates: start: 20010928
  7. PREDNISONE [Concomitant]
  8. FOLIC ACID [Concomitant]
  9. AMBIEN [Concomitant]
  10. ELAVIL                             /00002202/ [Concomitant]
  11. DARVOCET-N 100 [Concomitant]
  12. LITHIUM CARBONATE [Concomitant]
  13. FOSAMAX [Concomitant]
  14. KLONOPIN [Concomitant]
  15. PREVACID [Concomitant]

REACTIONS (18)
  - ALOPECIA [None]
  - DIARRHOEA [None]
  - DYSPHAGIA [None]
  - ERYTHEMA MULTIFORME [None]
  - GASTROINTESTINAL HAEMORRHAGE [None]
  - HAEMATOCHEZIA [None]
  - LIVER FUNCTION TEST ABNORMAL [None]
  - MOUTH ULCERATION [None]
  - NEUTROPENIA [None]
  - PANCYTOPENIA [None]
  - PHARYNGOLARYNGEAL PAIN [None]
  - PLATELET COUNT DECREASED [None]
  - PYREXIA [None]
  - RASH [None]
  - RASH ERYTHEMATOUS [None]
  - RASH PAPULAR [None]
  - RED BLOOD CELL COUNT DECREASED [None]
  - WHITE BLOOD CELL COUNT DECREASED [None]
